FAERS Safety Report 15099474 (Version 5)
Quarter: 2018Q3

REPORT INFORMATION
  Report Type: Spontaneous
  Country: BR (occurrence: BR)
  Receive Date: 20180702
  Receipt Date: 20180812
  Transmission Date: 20181010
  Serious: Yes (Life-Threatening, Hospitalization)
  Sender: FDA-Public Use
  Company Number: PHHY2018BR030628

PATIENT
  Age: 24 Year
  Sex: Female
  Weight: 64 kg

DRUGS (1)
  1. REVOLADE [Suspect]
     Active Substance: ELTROMBOPAG
     Indication: IMMUNE THROMBOCYTOPENIC PURPURA
     Dosage: 50 MG, QD (14 TABLETS)
     Route: 048
     Dates: start: 20180608, end: 20180620

REACTIONS (6)
  - Platelet count decreased [Unknown]
  - Skin reaction [Unknown]
  - Eyelid oedema [Recovering/Resolving]
  - Drug eruption [Recovering/Resolving]
  - Skin lesion [Recovering/Resolving]
  - Oropharyngeal discomfort [Recovering/Resolving]

NARRATIVE: CASE EVENT DATE: 20180617
